FAERS Safety Report 18444457 (Version 2)
Quarter: 2020Q4

REPORT INFORMATION
  Report Type: Report from Study
  Country: None (occurrence: US)
  Receive Date: 20201030
  Receipt Date: 20201127
  Transmission Date: 20210114
  Serious: Yes (Hospitalization, Other)
  Sender: FDA-Public Use
  Company Number: US-ABBVIE-20K-163-3593555-00

PATIENT
  Sex: Female
  Weight: 68.1 kg

DRUGS (3)
  1. WARFARIN [Concomitant]
     Active Substance: WARFARIN
     Indication: COAGULOPATHY
  2. HUMIRA [Suspect]
     Active Substance: ADALIMUMAB
     Indication: RHEUMATOID ARTHRITIS
     Route: 058
     Dates: start: 2010, end: 2014
  3. HUMIRA [Suspect]
     Active Substance: ADALIMUMAB
     Route: 058
     Dates: start: 2014

REACTIONS (13)
  - Ejection fraction decreased [Not Recovered/Not Resolved]
  - Cardiac disorder [Unknown]
  - Interstitial lung disease [Not Recovered/Not Resolved]
  - Lower limb fracture [Unknown]
  - Acquired cardiac septal defect [Not Recovered/Not Resolved]
  - Pulmonary fibrosis [Not Recovered/Not Resolved]
  - Rheumatoid arthritis [Unknown]
  - Aneurysm [Unknown]
  - Myocardial infarction [Recovered/Resolved]
  - Pulmonary calcification [Not Recovered/Not Resolved]
  - Lung disorder [Not Recovered/Not Resolved]
  - Cerebral haemorrhage [Unknown]
  - Dysstasia [Unknown]

NARRATIVE: CASE EVENT DATE: 2006
